FAERS Safety Report 9017523 (Version 1)
Quarter: 2013Q1

REPORT INFORMATION
  Report Type: Spontaneous
  Country: US (occurrence: US)
  Receive Date: 20130117
  Receipt Date: 20130117
  Transmission Date: 20140127
  Serious: Yes (Other)
  Sender: FDA-Public Use
  Company Number: US-NICOBRDEV-2013-00265

PATIENT
  Sex: Female
  Weight: 68 kg

DRUGS (1)
  1. ALENDRONATE SODIUM [Suspect]
     Indication: OSTEOPOROSIS
     Dosage: ONE TABLET EVERY WEEK
     Route: 048
     Dates: start: 2007

REACTIONS (3)
  - Lower limb fracture [Recovering/Resolving]
  - Foot fracture [Recovering/Resolving]
  - Gait disturbance [Recovering/Resolving]
